FAERS Safety Report 26058730 (Version 1)
Quarter: 2025Q4

REPORT INFORMATION
  Report Type: Spontaneous
  Country: BR (occurrence: BR)
  Receive Date: 20251118
  Receipt Date: 20251118
  Transmission Date: 20260118
  Serious: Yes (Other)
  Sender: ROCHE
  Company Number: BR-ROCHE-10000367594

PATIENT
  Age: 21 Year
  Sex: Female

DRUGS (1)
  1. OCREVUS [Suspect]
     Active Substance: OCRELIZUMAB
     Indication: Multiple sclerosis
     Route: 065
     Dates: start: 2025

REACTIONS (3)
  - Maternal exposure during pregnancy [Unknown]
  - Gestational diabetes [Unknown]
  - Gestational hypertension [Unknown]

NARRATIVE: CASE EVENT DATE: 20250807
